FAERS Safety Report 21181857 (Version 3)
Quarter: 2023Q4

REPORT INFORMATION
  Report Type: Spontaneous
  Country: DE (occurrence: DE)
  Receive Date: 20220806
  Receipt Date: 20231104
  Transmission Date: 20240109
  Serious: Yes (Other)
  Sender: FDA-Public Use
  Company Number: DE-002147023-NVSC2022DE173711

PATIENT
  Sex: Female

DRUGS (10)
  1. XOLAIR [Suspect]
     Active Substance: OMALIZUMAB
     Indication: Aggression
     Dosage: 150 MG, QMO
     Route: 065
     Dates: start: 201010, end: 20191227
  2. XOLAIR [Suspect]
     Active Substance: OMALIZUMAB
     Indication: Systemic mastocytosis
     Dosage: 150 MG, BIW
     Route: 065
     Dates: start: 20200311, end: 202004
  3. XOLAIR [Suspect]
     Active Substance: OMALIZUMAB
     Dosage: 150 MG, EVERY 3 WEEKS
     Route: 065
     Dates: start: 202004, end: 2020
  4. XOLAIR [Suspect]
     Active Substance: OMALIZUMAB
     Dosage: 150 MG, EVERY 4 WEEKS
     Route: 065
     Dates: start: 20200520
  5. XOLAIR [Suspect]
     Active Substance: OMALIZUMAB
     Dosage: 150 MG, EVERY 4 WEEKS
     Route: 065
     Dates: start: 20230815
  6. FAMOTIDINE [Concomitant]
     Active Substance: FAMOTIDINE
     Indication: Product used for unknown indication
     Dosage: UNK
  7. LEVOTHYROXINE [Concomitant]
     Active Substance: LEVOTHYROXINE
     Indication: Product used for unknown indication
     Dosage: UNK
  8. KETOTIFEN [Concomitant]
     Active Substance: KETOTIFEN
     Indication: Product used for unknown indication
     Dosage: UNK
  9. ROCALTROL [Concomitant]
     Active Substance: CALCITRIOL
     Indication: Product used for unknown indication
     Dosage: UNK
  10. CALCIUM [Concomitant]
     Active Substance: CALCIUM
     Indication: Product used for unknown indication
     Dosage: UNK

REACTIONS (12)
  - Eosinophilic granulomatosis with polyangiitis [Unknown]
  - Hyperhidrosis [Unknown]
  - Arthralgia [Unknown]
  - Muscle spasms [Recovering/Resolving]
  - Dizziness [Unknown]
  - Pruritus [Recovering/Resolving]
  - Petechiae [Recovering/Resolving]
  - Blood iron abnormal [Unknown]
  - Haemoglobin decreased [Unknown]
  - Blood thyroid stimulating hormone decreased [Unknown]
  - Bone pain [Recovering/Resolving]
  - Off label use [Unknown]
